FAERS Safety Report 4480957-3 (Version None)
Quarter: 2004Q4

REPORT INFORMATION
  Report Type: 
  Country: None (occurrence: None)
  Receive Date: 20041021
  Receipt Date: 20040127
  Transmission Date: 20050328
  Serious: Yes (Disabling)
  Sender: FDA-Public Use
  Company Number: JP-BRISTOL-MYERS SQUIBB COMPANY-12494308

PATIENT
  Age: 2 Year
  Sex: Male

DRUGS (6)
  1. IFOMIDE [Suspect]
     Indication: HEPATOBLASTOMA
     Dosage: DOSE RANGE: 1.2-1.26 GRAMS
     Route: 041
     Dates: start: 20020816, end: 20020925
  2. LASTET [Suspect]
     Indication: AUTOLOGOUS BONE MARROW TRANSPLANTATION THERAPY
     Route: 041
     Dates: start: 20030117, end: 20030120
  3. PARAPLATIN [Suspect]
     Indication: AUTOLOGOUS BONE MARROW TRANSPLANTATION THERAPY
     Route: 042
     Dates: start: 20030117, end: 20030119
  4. AMIKACIN [Suspect]
     Indication: HEPATOBLASTOMA
     Route: 042
     Dates: start: 20020907, end: 20021009
  5. ALKERAN [Suspect]
     Indication: AUTOLOGOUS BONE MARROW TRANSPLANTATION THERAPY
     Route: 041
     Dates: start: 20030120, end: 20030121
  6. RANDA [Suspect]
     Indication: HEPATOBLASTOMA
     Dosage: DOSE RANGE: 35-38 MG
     Route: 041
     Dates: start: 20020426, end: 20020719

REACTIONS (8)
  - BONE MARROW DEPRESSION [None]
  - FANCONI SYNDROME ACQUIRED [None]
  - GASTROINTESTINAL DISORDER [None]
  - HEPATOCELLULAR DAMAGE [None]
  - ILEUS [None]
  - NEPHROPATHY TOXIC [None]
  - RENAL ATROPHY [None]
  - RENAL TUBULAR DISORDER [None]
